FAERS Safety Report 5513034-0 (Version None)
Quarter: 2007Q4

REPORT INFORMATION
  Report Type: 
  Country: None (occurrence: None)
  Receive Date: 20071112
  Receipt Date: 20071030
  Transmission Date: 20080405
  Serious: Yes (Death, Hospitalization)
  Sender: FDA-Public Use
  Company Number: GB-ROCHE-529005

PATIENT
  Age: 58 Year
  Sex: Female

DRUGS (3)
  1. XELODA [Suspect]
     Route: 065
  2. DOCETAXEL [Concomitant]
  3. VINORELBINE [Concomitant]

REACTIONS (4)
  - COLITIS [None]
  - DEATH [None]
  - DIARRHOEA [None]
  - DISCOMFORT [None]
